FAERS Safety Report 5994918-6 (Version None)
Quarter: 2008Q4

REPORT INFORMATION
  Report Type: 
  Country: None (occurrence: None)
  Receive Date: 20081212
  Receipt Date: 20080917
  Transmission Date: 20090506
  Serious: No
  Sender: FDA-Public Use
  Company Number: US-ABBOTT-08P-163-0476988-00

PATIENT
  Sex: Male
  Weight: 91.254 kg

DRUGS (8)
  1. HUMIRA [Suspect]
     Indication: RHEUMATOID ARTHRITIS
     Route: 058
     Dates: start: 20080905
  2. METHOTREXATE [Concomitant]
     Indication: RHEUMATOID ARTHRITIS
     Dosage: 0.6ML/25MG
     Route: 058
     Dates: start: 20080101
  3. CELECOXIB [Concomitant]
     Indication: ANTIINFLAMMATORY THERAPY
     Route: 048
     Dates: start: 20071101
  4. HYDROXYCHLOROQUINE SULFATE [Concomitant]
     Indication: ANTIINFLAMMATORY THERAPY
     Route: 048
     Dates: start: 20080101
  5. MORNIFLUMATE [Concomitant]
     Indication: PROSTATIC DISORDER
     Route: 048
     Dates: start: 20060101
  6. ROPINIROLE HYDROCHLORIDE [Concomitant]
     Indication: RESTLESS LEGS SYNDROME
     Route: 048
     Dates: start: 20050101
  7. ZOLPIDEM TARTRATE [Concomitant]
     Indication: INSOMNIA
     Dosage: AT BEDTIME
     Route: 048
     Dates: start: 20050101
  8. LORATADINE [Concomitant]
     Indication: PAIN
     Route: 048
     Dates: start: 20070101

REACTIONS (1)
  - ACCIDENTAL EXPOSURE [None]
